FAERS Safety Report 16985270 (Version 1)
Quarter: 2019Q4

REPORT INFORMATION
  Report Type: Report from Study
  Country: CA (occurrence: CA)
  Receive Date: 20191101
  Receipt Date: 20191101
  Transmission Date: 20200122
  Serious: Yes (Other)
  Sender: FDA-Public Use
  Company Number: CA-PFIZER INC-2019467251

PATIENT
  Sex: Female

DRUGS (11)
  1. CLOBETASOL [Concomitant]
     Active Substance: CLOBETASOL
     Route: 065
  2. CELLCEPT [Suspect]
     Active Substance: MYCOPHENOLATE MOFETIL\MYCOPHENOLATE MOFETIL HYDROCHLORIDE
     Indication: PEMPHIGUS
     Route: 065
  3. BLEXTEN [Concomitant]
     Active Substance: BILASTINE
  4. LOVASTATIN. [Concomitant]
     Active Substance: LOVASTATIN
  5. METFORMIN [Concomitant]
     Active Substance: METFORMIN HYDROCHLORIDE
     Route: 065
  6. VITAMIN B12 [Concomitant]
     Active Substance: CYANOCOBALAMIN
  7. TYLENOL WITH CODEINE [Concomitant]
     Active Substance: ACETAMINOPHEN\CODEINE PHOSPHATE
  8. METHOTREXATE SODIUM. [Suspect]
     Active Substance: METHOTREXATE SODIUM
     Route: 065
  9. DOXYCYCLINE HYCLATE. [Suspect]
     Active Substance: DOXYCYCLINE HYCLATE
     Route: 065
  10. EZETIMIBE. [Concomitant]
     Active Substance: EZETIMIBE
  11. SYNTHROID [Concomitant]
     Active Substance: LEVOTHYROXINE SODIUM

REACTIONS (3)
  - Treatment failure [Unknown]
  - Gastrointestinal haemorrhage [Unknown]
  - Haemoglobin decreased [Unknown]
